FAERS Safety Report 8015449-8 (Version None)
Quarter: 2011Q4

REPORT INFORMATION
  Report Type: 
  Country: None (occurrence: None)
  Receive Date: 20111230
  Receipt Date: 20111220
  Transmission Date: 20120403
  Serious: Yes (Hospitalization, Other)
  Sender: FDA-Public Use
  Company Number: GB-BAYER-2011-122992

PATIENT
  Sex: Male

DRUGS (2)
  1. XOLAIR [Suspect]
     Dosage: UNK
     Route: 064
     Dates: start: 20090901, end: 20100920
  2. MIRENA [Suspect]
     Route: 064

REACTIONS (4)
  - JOINT DISLOCATION [None]
  - SEPSIS [None]
  - JAUNDICE NEONATAL [None]
  - HYPERBILIRUBINAEMIA [None]
